FAERS Safety Report 5357557-6 (Version None)
Quarter: 2007Q2

REPORT INFORMATION
  Report Type: 
  Country: None (occurrence: None)
  Receive Date: 20070614
  Receipt Date: 20070610
  Transmission Date: 20071010
  Serious: Yes (Other)
  Sender: FDA-Public Use
  Company Number: US-PFIZER INC-2006116231

PATIENT
  Sex: Male
  Weight: 88.5 kg

DRUGS (1)
  1. VIAGRA [Suspect]
     Indication: ERECTILE DYSFUNCTION
     Route: 048

REACTIONS (3)
  - ECZEMA [None]
  - MYCOSIS FUNGOIDES [None]
  - RASH ERYTHEMATOUS [None]
